FAERS Safety Report 17000046 (Version 3)
Quarter: 2019Q4

REPORT INFORMATION
  Report Type: Report from Study
  Country: PA (occurrence: PA)
  Receive Date: 20191106
  Receipt Date: 20191121
  Transmission Date: 20200122
  Serious: No
  Sender: FDA-Public Use
  Company Number: NVSC2019PA026139

PATIENT
  Sex: Male
  Weight: 90.7 kg

DRUGS (1)
  1. GILENYA [Suspect]
     Active Substance: FINGOLIMOD HYDROCHLORIDE
     Indication: MULTIPLE SCLEROSIS
     Dosage: 0.5 MG
     Route: 065

REACTIONS (4)
  - Malaise [Unknown]
  - Urinary tract infection [Recovering/Resolving]
  - Urinary incontinence [Unknown]
  - Pain [Unknown]
